FAERS Safety Report 7692473-6 (Version None)
Quarter: 2011Q3

REPORT INFORMATION
  Report Type: 
  Country: None (occurrence: None)
  Receive Date: 20110818
  Receipt Date: 20110805
  Transmission Date: 20111222
  Serious: Yes (Other)
  Sender: FDA-Public Use
  Company Number: JP-CELGENEUS-087-21880-11032562

PATIENT
  Sex: Male

DRUGS (16)
  1. ZEFIX [Concomitant]
     Dosage: 100 MILLIGRAM
     Route: 048
     Dates: start: 20100914
  2. URSO 250 [Concomitant]
     Dosage: 300 MILLIGRAM
     Route: 048
     Dates: start: 20100914
  3. REVLIMID [Suspect]
     Dosage: 10 MILLIGRAM
     Route: 048
     Dates: start: 20101013, end: 20101102
  4. ROCEPHIN [Concomitant]
     Route: 065
     Dates: start: 20101228
  5. REVLIMID [Suspect]
     Dosage: 15 MILLIGRAM
     Route: 048
     Dates: start: 20110119, end: 20110210
  6. REVLIMID [Suspect]
     Dosage: 10 MILLIGRAM
     Route: 048
     Dates: start: 20101110, end: 20101130
  7. REVLIMID [Suspect]
     Dosage: 10 MILLIGRAM
     Route: 048
     Dates: start: 20101208, end: 20101227
  8. DOPS [Concomitant]
     Indication: MULTIPLE MYELOMA
     Dosage: 200 MILLIGRAM
     Route: 048
     Dates: start: 20100914, end: 20101027
  9. REVLIMID [Suspect]
     Dosage: 15 MILLIGRAM
     Route: 048
     Dates: start: 20110217, end: 20110301
  10. PREDNISOLONE [Concomitant]
     Indication: MULTIPLE MYELOMA
     Dosage: 15 MILLIGRAM
     Route: 048
     Dates: start: 20101110, end: 20101207
  11. FLUCONAZOLE [Concomitant]
     Indication: PROPHYLAXIS
     Dosage: 100 MILLIGRAM
     Route: 048
     Dates: start: 20100914
  12. REVLIMID [Suspect]
     Indication: MULTIPLE MYELOMA
     Dosage: 10 MILLIGRAM
     Route: 048
     Dates: start: 20100914, end: 20101004
  13. MUCOSTA [Concomitant]
     Indication: MULTIPLE MYELOMA
     Dosage: 300 MILLIGRAM
     Route: 048
     Dates: start: 20100914
  14. RABEPRAZOLE SODIUM [Concomitant]
     Indication: MULTIPLE MYELOMA
     Dosage: 10 MILLIGRAM
     Route: 048
     Dates: start: 20100914, end: 20110209
  15. BACTRIM [Concomitant]
     Indication: PROPHYLAXIS
     Dosage: 2 TABLET
     Route: 048
     Dates: start: 20100914
  16. METLIGINE [Concomitant]
     Indication: MULTIPLE MYELOMA
     Dosage: 6 MILLIGRAM
     Route: 048
     Dates: start: 20100914, end: 20101027

REACTIONS (3)
  - NEPHROTIC SYNDROME [None]
  - NAUSEA [None]
  - URINARY TRACT INFECTION [None]
